FAERS Safety Report 10033896 (Version 4)
Quarter: 2014Q2

REPORT INFORMATION
  Report Type: Report from Study
  Country: CA (occurrence: CA)
  Receive Date: 20140325
  Receipt Date: 20140508
  Transmission Date: 20141212
  Serious: No
  Sender: FDA-Public Use
  Company Number: CA-ROCHE-1366171

PATIENT
  Age: 66 Year
  Sex: Female

DRUGS (15)
  1. RITUXAN [Suspect]
     Indication: RHEUMATOID ARTHRITIS
     Route: 042
     Dates: start: 20120626, end: 20120726
  2. ACTEMRA [Suspect]
     Indication: RHEUMATOID ARTHRITIS
     Route: 042
     Dates: start: 20140314
  3. ACETAMINOPHEN [Concomitant]
     Indication: PREMEDICATION
     Route: 048
     Dates: start: 20120626, end: 20120726
  4. DIPHENHYDRAMINE HCL [Concomitant]
     Indication: PREMEDICATION
     Route: 048
     Dates: start: 20120626, end: 20120726
  5. METHYLPREDNISOLONE [Concomitant]
     Indication: PREMEDICATION
     Route: 048
     Dates: start: 20120626, end: 20120726
  6. CARBOCAL D [Concomitant]
  7. AMLODIPINE [Concomitant]
  8. TRANDATE [Concomitant]
  9. DOXAZOSIN [Concomitant]
  10. PLAQUENIL [Concomitant]
  11. PREDNISONE [Concomitant]
  12. PILOCARPINE [Concomitant]
  13. HYDROCHLOROTHIAZIDE [Concomitant]
  14. PANTOPRAZOLE [Concomitant]
  15. SPIRONOLACTONE [Concomitant]

REACTIONS (2)
  - Hypertension [Recovering/Resolving]
  - Vision blurred [Unknown]
